FAERS Safety Report 6894072-2 (Version None)
Quarter: 2010Q3

REPORT INFORMATION
  Report Type: 
  Country: None (occurrence: None)
  Receive Date: 20100802
  Receipt Date: 20100722
  Transmission Date: 20110219
  Serious: Yes (Hospitalization)
  Sender: FDA-Public Use
  Company Number: US-JNJFOC-20100707678

PATIENT
  Age: 36 Year
  Sex: Female
  Weight: 54.43 kg

DRUGS (2)
  1. LEVAQUIN [Suspect]
     Indication: KIDNEY INFECTION
     Route: 048
  2. LEVAQUIN [Suspect]
     Route: 048

REACTIONS (13)
  - ARTHRALGIA [None]
  - DRUG INEFFECTIVE [None]
  - HYPOTONIA [None]
  - LIGAMENT PAIN [None]
  - MUSCLE TWITCHING [None]
  - MUSCULOSKELETAL CHEST PAIN [None]
  - MYALGIA [None]
  - PARAESTHESIA [None]
  - TENDON DISORDER [None]
  - TENDON PAIN [None]
  - TENDONITIS [None]
  - TREMOR [None]
  - URETHRAL PAIN [None]
